FAERS Safety Report 24084774 (Version 1)
Quarter: 2024Q3

REPORT INFORMATION
  Report Type: Spontaneous
  Country: CN (occurrence: CN)
  Receive Date: 20240712
  Receipt Date: 20240712
  Transmission Date: 20241016
  Serious: Yes (Hospitalization, Other)
  Sender: PFIZER
  Company Number: CN-PFIZER INC-PV202400090649

PATIENT
  Age: 39 Year
  Sex: Female
  Weight: 55.8 kg

DRUGS (2)
  1. METHOTREXATE SODIUM [Suspect]
     Active Substance: METHOTREXATE SODIUM
     Indication: Acute lymphocytic leukaemia
     Dosage: 100 MG, 1X/DAY, D1
     Route: 041
     Dates: start: 20240621, end: 20240621
  2. CYTARABINE [Suspect]
     Active Substance: CYTARABINE
     Indication: Acute lymphocytic leukaemia
     Dosage: 3 G, EVERY 12 HOURS, D4-5
     Route: 041
     Dates: start: 20240624, end: 20240625

REACTIONS (3)
  - White blood cell count decreased [Unknown]
  - Vaginal haemorrhage [Unknown]
  - Myelosuppression [Unknown]

NARRATIVE: CASE EVENT DATE: 20240703
